FAERS Safety Report 13743124 (Version 1)
Quarter: 2017Q3

REPORT INFORMATION
  Report Type: Spontaneous
  Country: SI (occurrence: SI)
  Receive Date: 20170711
  Receipt Date: 20170711
  Transmission Date: 20171127
  Serious: Yes (Other)
  Sender: FDA-Public Use
  Company Number: SI-JNJFOC-20170705331

PATIENT
  Sex: Female

DRUGS (1)
  1. XARELTO [Suspect]
     Active Substance: RIVAROXABAN
     Indication: ATRIAL FIBRILLATION
     Dosage: DOSAGE: UNKNOWN
     Route: 048

REACTIONS (4)
  - Ischaemic stroke [Unknown]
  - Intentional product misuse [Unknown]
  - Abdominal pain upper [Unknown]
  - Drug tolerance decreased [Unknown]
